FAERS Safety Report 10192365 (Version 2)
Quarter: 2014Q2

REPORT INFORMATION
  Report Type: Report from Study
  Country: US (occurrence: US)
  Receive Date: 20140523
  Receipt Date: 20140611
  Transmission Date: 20141212
  Serious: Yes (Hospitalization)
  Sender: FDA-Public Use
  Company Number: US-ACTELION-A-US2014-99031

PATIENT
  Age: 43 Year
  Sex: Female

DRUGS (4)
  1. MACITENTAN [Suspect]
     Indication: PULMONARY ARTERIAL HYPERTENSION
     Dosage: 10 MG, QD
     Route: 048
     Dates: start: 20140207
  2. SILDENAFIL [Concomitant]
  3. COUMADIN [Concomitant]
  4. ATROVENT [Concomitant]

REACTIONS (1)
  - Hysterectomy [Recovered/Resolved]
